FAERS Safety Report 19774204 (Version 1)
Quarter: 2021Q3

REPORT INFORMATION
  Report Type: Report from Study
  Country: US (occurrence: US)
  Receive Date: 20210901
  Receipt Date: 20210901
  Transmission Date: 20211014
  Serious: Yes (Other)
  Sender: FDA-Public Use
  Company Number: US-SA-2021SA286643

PATIENT
  Age: 38 Year
  Sex: Male

DRUGS (1)
  1. TERIFLUNOMIDE. [Suspect]
     Active Substance: TERIFLUNOMIDE
     Indication: MULTIPLE SCLEROSIS
     Dosage: 14 MG, QD
     Route: 048

REACTIONS (11)
  - Weight decreased [Unknown]
  - Hemiplegia [Unknown]
  - Vitamin D decreased [Not Recovered/Not Resolved]
  - Hypertension [Unknown]
  - Diabetes mellitus [Unknown]
  - Multiple sclerosis [Unknown]
  - Nonalcoholic fatty liver disease [Unknown]
  - Anxiety [Unknown]
  - Blood cholesterol abnormal [Unknown]
  - Fatigue [Unknown]
  - Cough [Unknown]

NARRATIVE: CASE EVENT DATE: 202108
